FAERS Safety Report 19833306 (Version 1)
Quarter: 2021Q3

REPORT INFORMATION
  Report Type: Spontaneous
  Country: CA (occurrence: CA)
  Receive Date: 20210914
  Receipt Date: 20210914
  Transmission Date: 20211014
  Serious: Yes (Hospitalization, Other)
  Sender: FDA-Public Use
  Company Number: CA-PFIZER INC-202101145210

PATIENT
  Age: 37 Year
  Sex: Male
  Weight: 72 kg

DRUGS (17)
  1. ALLOPURINOL. [Concomitant]
     Active Substance: ALLOPURINOL
  2. ETOPOSIDE. [Suspect]
     Active Substance: ETOPOSIDE
     Indication: HODGKIN^S DISEASE
     Dosage: UNK
  3. CALCIUM CARBONATE AND VITAMIN D [Concomitant]
     Active Substance: CALCIUM CARBONATE\VITAMIN D
  4. DEXAMETHASONE. [Concomitant]
     Active Substance: DEXAMETHASONE
  5. FILGRASTIM [Concomitant]
     Active Substance: FILGRASTIM
  6. PROCHLORPERAZINE. [Concomitant]
     Active Substance: PROCHLORPERAZINE
  7. CARBOPLATIN. [Suspect]
     Active Substance: CARBOPLATIN
     Indication: HODGKIN^S DISEASE
     Dosage: UNK
  8. LORAZEPAM. [Concomitant]
     Active Substance: LORAZEPAM
  9. ONDANSETRON [Concomitant]
     Active Substance: ONDANSETRON
  10. QUETIAPINE. [Concomitant]
     Active Substance: QUETIAPINE
  11. VENLAFAXINE HYDROCHLORIDE. [Concomitant]
     Active Substance: VENLAFAXINE HYDROCHLORIDE
  12. IFOSFAMIDE FOR INJECTION [Suspect]
     Active Substance: IFOSFAMIDE
     Indication: HODGKIN^S DISEASE
     Dosage: UNK
  13. FUROSEMIDE. [Concomitant]
     Active Substance: FUROSEMIDE
  14. LORATADINE. [Concomitant]
     Active Substance: LORATADINE
     Route: 065
  15. MESNA. [Suspect]
     Active Substance: MESNA
     Indication: HODGKIN^S DISEASE
     Dosage: UNK
  16. FENTANYL. [Concomitant]
     Active Substance: FENTANYL
  17. PANTOPRAZOLE [Concomitant]
     Active Substance: PANTOPRAZOLE

REACTIONS (1)
  - Febrile neutropenia [Recovered/Resolved]
